FAERS Safety Report 7765811-3 (Version None)
Quarter: 2011Q3

REPORT INFORMATION
  Report Type: 
  Country: None (occurrence: None)
  Receive Date: 20110921
  Receipt Date: 20110912
  Transmission Date: 20111222
  Serious: Yes (Other)
  Sender: FDA-Public Use
  Company Number: US-ASTRAZENECA-2011SE42689

PATIENT
  Age: 49 Year
  Sex: Female
  Weight: 81.6 kg

DRUGS (11)
  1. PERCOCET [Concomitant]
     Dosage: PRN
  2. ZOFRAN [Concomitant]
     Dosage: PRN
  3. ZANAFLEX [Concomitant]
  4. OXYCONTIN [Concomitant]
  5. LIDODERM [Concomitant]
  6. ELAVIL [Concomitant]
  7. SEROQUEL XR [Suspect]
     Route: 048
  8. ZANTAC [Concomitant]
     Dosage: PRN
  9. NEXIUM [Suspect]
     Route: 048
  10. CYMBALTA [Concomitant]
  11. ZOCOR [Concomitant]

REACTIONS (2)
  - BREAST CANCER [None]
  - DRUG PRESCRIBING ERROR [None]
